FAERS Safety Report 6584126-2 (Version None)
Quarter: 2010Q1

REPORT INFORMATION
  Report Type: 
  Country: None (occurrence: None)
  Receive Date: 20100216
  Receipt Date: 20100205
  Transmission Date: 20100710
  Serious: Yes (Other)
  Sender: FDA-Public Use
  Company Number: US-JNJFOC-20091006359

PATIENT
  Sex: Female
  Weight: 59.88 kg

DRUGS (2)
  1. DOXORUBICIN HCL [Suspect]
     Indication: OVARIAN CANCER
     Dosage: 7TH INFUSION
     Route: 042
  2. DOXORUBICIN HCL [Suspect]
     Dosage: 6 CYCLES
     Route: 042

REACTIONS (3)
  - NEUTROPENIA [None]
  - RASH [None]
  - VISUAL IMPAIRMENT [None]
